FAERS Safety Report 7601946-3 (Version None)
Quarter: 2011Q3

REPORT INFORMATION
  Report Type: 
  Country: None (occurrence: None)
  Receive Date: 20110711
  Receipt Date: 20110103
  Transmission Date: 20111222
  Serious: Yes (Death, Other)
  Sender: FDA-Public Use
  Company Number: US-BAYER-201020453NA

PATIENT
  Age: 73 Year
  Sex: Female
  Weight: 63 kg

DRUGS (23)
  1. DILTIAZEM [Concomitant]
     Dosage: 10 MG
     Route: 042
     Dates: start: 20030714, end: 20030714
  2. CARDIAZEM [Concomitant]
     Dosage: 10 MG/H
     Route: 042
     Dates: start: 20030714, end: 20030714
  3. ALBUMIN (HUMAN) [Concomitant]
     Dosage: 500 ML
     Dates: start: 20030714
  4. SYNTHROID [Concomitant]
     Route: 048
  5. MIDAZOLAM HCL [Concomitant]
     Dosage: 13 MG
     Route: 042
     Dates: start: 20030714, end: 20030714
  6. PHENYLEPHRINE HCL [Concomitant]
     Dosage: 1.3 MG
     Route: 042
     Dates: start: 20030714, end: 20030714
  7. DILTIAZEM [Concomitant]
     Dosage: 8 MG
     Route: 042
     Dates: start: 20030714, end: 20030714
  8. EPINEPHRINE [Concomitant]
     Dosage: 346 MCG
     Route: 042
     Dates: start: 20030714, end: 20030714
  9. PLASMALYTE [GLUCOSE,POTASSIUM CHLORIDE] [Concomitant]
     Dosage: 2500 ML, UNK
     Dates: start: 20030714
  10. TRASYLOL [Suspect]
     Indication: MITRAL VALVE REPAIR
     Dosage: 200 ML LOADING DOSE
     Route: 042
     Dates: start: 20030714, end: 20030714
  11. DIGOXIN [Concomitant]
     Dosage: 250 MCG
     Route: 042
     Dates: start: 20030714, end: 20030714
  12. MILRINONE [Concomitant]
     Dosage: 3000 MCG
     Route: 042
     Dates: start: 20030714, end: 20030714
  13. TRASYLOL [Suspect]
     Dosage: 50 ML/HOUR, INFUSION
     Route: 042
     Dates: start: 20030714, end: 20030714
  14. HEPARIN [Concomitant]
     Dosage: 34000 U
     Route: 042
     Dates: start: 20030714, end: 20030714
  15. DIGOXIN [Concomitant]
     Route: 048
  16. TRASYLOL [Suspect]
     Indication: PRODUCT USED FOR UNKNOWN INDICATION
     Dosage: 1 ML, ONCE TEST DOSE
     Route: 042
     Dates: start: 20030714, end: 20030714
  17. PROTAMINE SULFATE [Concomitant]
     Dosage: 390 MG
     Route: 042
     Dates: start: 20030714, end: 20030714
  18. PHENYLEPHRINE HCL [Concomitant]
     Dosage: 4 MG
     Route: 042
     Dates: start: 20030714, end: 20030714
  19. ESMOLOL [Concomitant]
     Dosage: 30 MG
     Route: 042
     Dates: start: 20030714, end: 20030714
  20. HEPARIN [Concomitant]
     Route: 058
  21. FENTANYL [Concomitant]
     Dosage: 2250 MCG
     Route: 042
     Dates: start: 20030714, end: 20030714
  22. SUCCINYLCHOLINE CHLORIDE [Concomitant]
     Dosage: 100 MG
     Route: 042
     Dates: start: 20030714, end: 20030714
  23. PANCURONIUM [Concomitant]
     Dosage: 14 MG
     Route: 042
     Dates: start: 20030714, end: 20030714

REACTIONS (11)
  - RENAL INJURY [None]
  - RENAL IMPAIRMENT [None]
  - STRESS [None]
  - DEATH [None]
  - ANHEDONIA [None]
  - PAIN [None]
  - FEAR [None]
  - MULTI-ORGAN FAILURE [None]
  - ANXIETY [None]
  - INJURY [None]
  - RENAL FAILURE [None]
